FAERS Safety Report 15109785 (Version 1)
Quarter: 2018Q3

REPORT INFORMATION
  Report Type: Spontaneous
  Country: IT (occurrence: IT)
  Receive Date: 20180705
  Receipt Date: 20180705
  Transmission Date: 20181010
  Serious: Yes (Other)
  Sender: FDA-Public Use
  Company Number: IT-TEVA-2018-IT-918110

PATIENT
  Age: 71 Year
  Sex: Male

DRUGS (1)
  1. QUETIAPINA TEVA ITALIA 50 MG COMPRESSE A RILASCIO PROLUNGATO [Suspect]
     Active Substance: QUETIAPINE
     Route: 065
     Dates: start: 20180322, end: 20180325

REACTIONS (4)
  - Intentional self-injury [Recovered/Resolved]
  - Insomnia [Recovered/Resolved]
  - Drug ineffective [Recovered/Resolved]
  - Aggression [Recovered/Resolved]

NARRATIVE: CASE EVENT DATE: 20180322
